FAERS Safety Report 6174172-5 (Version None)
Quarter: 2009Q2

REPORT INFORMATION
  Report Type: 
  Country: None (occurrence: None)
  Receive Date: 20090430
  Receipt Date: 20080409
  Transmission Date: 20091009
  Serious: No
  Sender: FDA-Public Use
  Company Number: US-ASTRAZENECA-2008UW07187

PATIENT
  Age: 41 Year
  Sex: Female
  Weight: 71.7 kg

DRUGS (1)
  1. NEXIUM [Suspect]
     Indication: REFLUX OESOPHAGITIS
     Route: 048

REACTIONS (3)
  - DIARRHOEA [None]
  - HERPES ZOSTER [None]
  - VOMITING [None]
